FAERS Safety Report 21763681 (Version 4)
Quarter: 2023Q1

REPORT INFORMATION
  Report Type: Spontaneous
  Country: US (occurrence: US)
  Receive Date: 20221222
  Receipt Date: 20230321
  Transmission Date: 20230417
  Serious: No
  Sender: FDA-Public Use
  Company Number: US-BIOVITRUM-2022US15059

PATIENT
  Age: 11 Month
  Sex: Female
  Weight: 7 kg

DRUGS (9)
  1. SYNAGIS [Suspect]
     Active Substance: PALIVIZUMAB
     Indication: Acute respiratory distress syndrome
     Dosage: 50 MG SDV/INJ PF 0.5 ML 1^S, INTO THE MUSCLE, MONTHLY
     Route: 030
     Dates: start: 20221115
  2. SYNAGIS [Suspect]
     Active Substance: PALIVIZUMAB
     Indication: Transient tachypnoea of the newborn
  3. SYNAGIS [Suspect]
     Active Substance: PALIVIZUMAB
     Indication: Tracheostomy
  4. SYNAGIS [Suspect]
     Active Substance: PALIVIZUMAB
     Indication: Vocal cord paralysis
  5. EPINEPHRINE [Concomitant]
     Active Substance: EPINEPHRINE
  6. MUPIROCIN [Concomitant]
     Active Substance: MUPIROCIN
     Dosage: 2% CREAM (G)
  7. CIPROFLOXACIN HYDROCHLORIDE [Concomitant]
     Active Substance: CIPROFLOXACIN HYDROCHLORIDE
     Dosage: 0.3% DROPS
  8. FAMOTIDINE [Concomitant]
     Active Substance: FAMOTIDINE
     Dosage: 40 MG/5 ML SUSPENSION
  9. ALBUTEROL SULFATE [Concomitant]
     Active Substance: ALBUTEROL SULFATE

REACTIONS (4)
  - Product dose omission issue [Unknown]
  - Diarrhoea [Recovered/Resolved]
  - Infection [Unknown]
  - Nasopharyngitis [Unknown]

NARRATIVE: CASE EVENT DATE: 20230206
